FAERS Safety Report 18592870 (Version 1)
Quarter: 2020Q4

REPORT INFORMATION
  Report Type: Spontaneous
  Country: US (occurrence: US)
  Receive Date: 20201209
  Receipt Date: 20201209
  Transmission Date: 20210114
  Serious: Yes (Hospitalization)
  Sender: FDA-Public Use
  Company Number: US-CADILA HEALTHCARE LIMITED-US-ZYDUS-058731

PATIENT

DRUGS (12)
  1. DIVALPROEX [Suspect]
     Active Substance: DIVALPROEX SODIUM
     Indication: MIGRAINE PROPHYLAXIS
     Dosage: 250 MILLIGRAM, BID
     Route: 065
  2. DONEPEZIL. [Suspect]
     Active Substance: DONEPEZIL
     Indication: CRANIOCEREBRAL INJURY
     Dosage: 10 MILLIGRAM, QD
     Route: 065
  3. INSULIN GLARGINE [Concomitant]
     Active Substance: INSULIN GLARGINE
     Indication: TYPE 2 DIABETES MELLITUS
     Dosage: 15 UNIT ONCE/DAY
  4. QUETIAPINE. [Suspect]
     Active Substance: QUETIAPINE
     Indication: CRANIOCEREBRAL INJURY
     Dosage: 25 MILLIGRAM, BID
     Route: 065
  5. TRAZODONE [Suspect]
     Active Substance: TRAZODONE HYDROCHLORIDE
     Indication: CRANIOCEREBRAL INJURY
     Dosage: 50 MILLIGRAM (AS NEEDED, TAKEN 2-3 TIME TWICE/DAY)
     Route: 065
  6. VENLAFAXINE [Suspect]
     Active Substance: VENLAFAXINE HYDROCHLORIDE
     Indication: CRANIOCEREBRAL INJURY
     Dosage: 37.5 MILLIGRAM, BID
     Route: 065
  7. MELATONIN [Concomitant]
     Active Substance: MELATONIN
     Indication: CRANIOCEREBRAL INJURY
     Dosage: 3 MILLIGRAM, QD
  8. TAMSULOSIN [Concomitant]
     Active Substance: TAMSULOSIN
     Indication: PRODUCT USED FOR UNKNOWN INDICATION
     Dosage: 0.4 MILLIGRAM, QD
  9. MAGNESIUM OXIDE. [Concomitant]
     Active Substance: MAGNESIUM OXIDE
     Indication: PRODUCT USED FOR UNKNOWN INDICATION
     Dosage: 400 MILLIGRAM, QD
  10. DIVALPROEX [Suspect]
     Active Substance: DIVALPROEX SODIUM
     Indication: CRANIOCEREBRAL INJURY
     Dosage: 125 MILLIGRAM, BID
     Route: 065
  11. METFORMIN [Concomitant]
     Active Substance: METFORMIN HYDROCHLORIDE
     Indication: TYPE 2 DIABETES MELLITUS
     Dosage: 1000 MILLIGRAM, BID
  12. PRAVASTATIN. [Concomitant]
     Active Substance: PRAVASTATIN
     Indication: PRODUCT USED FOR UNKNOWN INDICATION
     Dosage: 20 MILLIGRAM, QD

REACTIONS (1)
  - Serotonin syndrome [Recovered/Resolved]
